FAERS Safety Report 5063665-X (Version None)
Quarter: 2006Q3

REPORT INFORMATION
  Report Type: 
  Country: None (occurrence: None)
  Receive Date: 20060724
  Receipt Date: 20060718
  Transmission Date: 20061208
  Serious: Yes (Death, Hospitalization)
  Sender: FDA-Public Use
  Company Number: 2006-145525-NL

PATIENT
  Age: 75 Year
  Sex: Male

DRUGS (2)
  1. DANAPAROID SODIUM [Suspect]
     Indication: HEPARIN-INDUCED THROMBOCYTOPENIA
     Dosage: 1500 ANTI_XA/750 ANTI_XA INTRAVENOUS (NOS)
     Route: 042
     Dates: start: 20060306, end: 20060312
  2. HEPARIN [Concomitant]

REACTIONS (5)
  - ANAEMIA [None]
  - GASTROINTESTINAL HAEMORRHAGE [None]
  - MELAENA [None]
  - PURULENT DISCHARGE [None]
  - RESPIRATORY DISORDER [None]
